FAERS Safety Report 23798740 (Version 1)
Quarter: 2024Q2

REPORT INFORMATION
  Report Type: Spontaneous
  Country: US (occurrence: None)
  Receive Date: 20240427
  Receipt Date: 20240427
  Transmission Date: 20240716
  Serious: Yes (Other)
  Sender: FDA-Public Use
  Company Number: None

PATIENT
  Age: 32 Year
  Sex: Female
  Weight: 76.05 kg

DRUGS (10)
  1. PAXLOVID [Suspect]
     Active Substance: NIRMATRELVIR\RITONAVIR
     Indication: COVID-19
     Dosage: OTHER QUANTITY : 3 TABLET(S);?FREQUENCY : TWICE A DAY;?
     Route: 048
     Dates: start: 20240323, end: 20240326
  2. ADVAIR HFA [Concomitant]
     Active Substance: FLUTICASONE PROPIONATE\SALMETEROL XINAFOATE
  3. ALBUTEROL [Concomitant]
     Active Substance: ALBUTEROL
  4. CIPROFLOXACIN [Concomitant]
     Active Substance: CIPROFLOXACIN
  5. SERTRALINE [Concomitant]
     Active Substance: SERTRALINE HYDROCHLORIDE
  6. TIZANIDINE [Concomitant]
     Active Substance: TIZANIDINE
  7. ONDANSETRON [Concomitant]
     Active Substance: ONDANSETRON
  8. OMEPRAZOLE [Concomitant]
     Active Substance: DONEPEZIL HYDROCHLORIDE\OMEPRAZOLE\OMEPRAZOLE MAGNESIUM
  9. PHENAZOPYRIDINE [Concomitant]
     Active Substance: PHENAZOPYRIDINE
  10. MIRALAX STOOL SOFTENER [Concomitant]

REACTIONS (11)
  - Rash [None]
  - Burning sensation [None]
  - Therapy interrupted [None]
  - Bronchitis [None]
  - Pneumonia [None]
  - Urinary tract infection [None]
  - Pain [None]
  - Dizziness [None]
  - Dizziness postural [None]
  - Chest pain [None]
  - Musculoskeletal chest pain [None]

NARRATIVE: CASE EVENT DATE: 20240319
